FAERS Safety Report 25500061 (Version 1)
Quarter: 2025Q2

REPORT INFORMATION
  Report Type: Spontaneous
  Country: PK (occurrence: None)
  Receive Date: 20250628
  Receipt Date: 20250628
  Transmission Date: 20250716
  Serious: Yes (Hospitalization)
  Sender: FDA-CTU
  Company Number: None

PATIENT
  Age: 26 Year
  Sex: Male
  Weight: 55 kg

DRUGS (1)
  1. VENLAFAXINE [Suspect]
     Active Substance: VENLAFAXINE HYDROCHLORIDE
     Indication: Abdominal discomfort
     Dosage: OTHER QUANTITY : 1 TABLET(S);?FREQUENCY : DAILY;?
     Route: 048

REACTIONS (18)
  - Withdrawal syndrome [None]
  - Cognitive disorder [None]
  - Restlessness [None]
  - Akathisia [None]
  - Depersonalisation/derealisation disorder [None]
  - Weight decreased [None]
  - Vision blurred [None]
  - Anhedonia [None]
  - Anxiety [None]
  - Agitation [None]
  - Influenza like illness [None]
  - Mood swings [None]
  - Anger [None]
  - Negative thoughts [None]
  - Blunted affect [None]
  - Violence-related symptom [None]
  - Psychiatric symptom [None]
  - Lack of empathy [None]

NARRATIVE: CASE EVENT DATE: 20240601
